FAERS Safety Report 7968174-3 (Version None)
Quarter: 2011Q4

REPORT INFORMATION
  Report Type: 
  Country: None (occurrence: None)
  Receive Date: 20111207
  Receipt Date: 20111130
  Transmission Date: 20120403
  Serious: Yes (Life-Threatening, Hospitalization)
  Sender: FDA-Public Use
  Company Number: AUR-APL-2011-06034

PATIENT
  Age: 61 Year
  Sex: Male

DRUGS (5)
  1. PROPRANOLOL [Suspect]
     Indication: PRODUCT USED FOR UNKNOWN INDICATION
     Dosage: ORAL
     Route: 048
  2. PREDNISOLONE [Suspect]
     Indication: PRODUCT USED FOR UNKNOWN INDICATION
     Dosage: 20 MG (20 MG, 1 IN 1 D), ORAL
     Route: 048
  3. METFORMIN HCL [Suspect]
     Indication: TYPE 2 DIABETES MELLITUS
     Dosage: ORAL
     Route: 048
     Dates: end: 20110924
  4. DIOVAN HCT [Suspect]
     Indication: PRODUCT USED FOR UNKNOWN INDICATION
     Dosage: ORAL
     Route: 048
  5. ALDACTONE [Suspect]
     Indication: PRODUCT USED FOR UNKNOWN INDICATION
     Dosage: ORAL
     Route: 048

REACTIONS (3)
  - SEPTIC SHOCK [None]
  - LACTIC ACIDOSIS [None]
  - RENAL FAILURE ACUTE [None]
